FAERS Safety Report 13759345 (Version 8)
Quarter: 2018Q4

REPORT INFORMATION
  Report Type: Spontaneous
  Country: US (occurrence: US)
  Receive Date: 20170717
  Receipt Date: 20181205
  Transmission Date: 20190204
  Serious: No
  Sender: FDA-Public Use
  Company Number: US-PFIZER INC-2017307618

PATIENT
  Age: 3 Year
  Sex: Female
  Weight: 16.7 kg

DRUGS (4)
  1. GENOTROPIN [Suspect]
     Active Substance: SOMATROPIN
     Indication: BLOOD GROWTH HORMONE ABNORMAL
     Dosage: 1 MG, 1X/DAY
     Dates: start: 20180706
  2. GENOTROPIN [Suspect]
     Active Substance: SOMATROPIN
     Indication: BODY HEIGHT BELOW NORMAL
     Dosage: 1 MG, UNK
     Route: 058
     Dates: start: 201806
  3. GENOTROPIN [Suspect]
     Active Substance: SOMATROPIN
     Indication: TURNER^S SYNDROME
     Dosage: UNK
     Dates: start: 20180706
  4. GENOTROPIN [Suspect]
     Active Substance: SOMATROPIN
     Indication: GROWTH FAILURE
     Dosage: 0.5 MG, 1X/DAY (ONCE IN NIGHT/QHS)
     Dates: start: 20170711

REACTIONS (4)
  - Diarrhoea [Recovered/Resolved]
  - Incorrect dose administered [Recovered/Resolved]
  - Arthralgia [Recovered/Resolved]
  - Wrong device used [Recovered/Resolved]

NARRATIVE: CASE EVENT DATE: 20170712
